FAERS Safety Report 7755287-4 (Version None)
Quarter: 2011Q3

REPORT INFORMATION
  Report Type: 
  Country: None (occurrence: None)
  Receive Date: 20110916
  Receipt Date: 20110912
  Transmission Date: 20111222
  Serious: Yes (Other)
  Sender: FDA-Public Use
  Company Number: GB-PFIZER INC-2011182179

PATIENT
  Age: 31 Year
  Sex: Female

DRUGS (3)
  1. LITHIUM [Concomitant]
     Indication: BIPOLAR DISORDER
     Dosage: 1200 MG, 1X/DAY
     Route: 048
     Dates: start: 20100601
  2. PROMETHAZINE [Concomitant]
     Indication: HYPNOTHERAPY
     Dosage: 50 MG, 2X/DAY
     Route: 048
     Dates: start: 20110225
  3. LYRICA [Suspect]
     Indication: ANXIETY
     Dosage: 75 MG, 2X/DAY
     Route: 048
     Dates: start: 20110717, end: 20110822

REACTIONS (3)
  - DYSPNOEA [None]
  - DIZZINESS [None]
  - PALPITATIONS [None]
